FAERS Safety Report 8163654-2 (Version None)
Quarter: 2012Q1

REPORT INFORMATION
  Report Type: 
  Country: None (occurrence: None)
  Receive Date: 20120224
  Receipt Date: 20120210
  Transmission Date: 20120608
  Serious: Yes (Hospitalization)
  Sender: FDA-Public Use
  Company Number: AU-CELGENEUS-008-50794-11122226

PATIENT
  Sex: Female
  Weight: 73 kg

DRUGS (5)
  1. EVEROLIMUS [Suspect]
     Dosage: 2.5 MILLIGRAM
     Route: 065
     Dates: start: 20111218
  2. VIDAZA [Suspect]
     Dosage: 128 MILLIGRAM
     Route: 065
     Dates: start: 20111214
  3. EVEROLIMUS [Suspect]
     Dosage: 10 MILLIGRAM
     Route: 065
     Dates: start: 20110309
  4. VIDAZA [Suspect]
     Route: 065
     Dates: start: 20120130
  5. VIDAZA [Suspect]
     Dosage: 134 MILLIGRAM
     Route: 065
     Dates: start: 20110305

REACTIONS (3)
  - URINARY TRACT INFECTION [None]
  - FEBRILE NEUTROPENIA [None]
  - HYDROCEPHALUS [None]
